FAERS Safety Report 8959623 (Version 1)
Quarter: 2012Q4

REPORT INFORMATION
  Report Type: 
  Country: CA (occurrence: CA)
  Receive Date: 20121212
  Receipt Date: 20121212
  Transmission Date: 20130627
  Serious: Yes (Death, Other)
  Sender: FDA-Public Use
  Company Number: PHHY2011CA113425

PATIENT
  Sex: Female

DRUGS (4)
  1. ACLASTA [Suspect]
     Indication: OSTEOPOROSIS
     Dosage: UNK
     Route: 042
     Dates: start: 20090119
  2. ACLASTA [Suspect]
     Dosage: UNK
     Route: 042
     Dates: start: 20100211
  3. ACLASTA [Suspect]
     Dosage: UNK
     Route: 042
     Dates: start: 20110210
  4. ACLASTA [Suspect]
     Dosage: UNK
     Route: 042
     Dates: start: 20120130

REACTIONS (3)
  - Death [Fatal]
  - Pain in extremity [Unknown]
  - Gait disturbance [Unknown]
